FAERS Safety Report 8557418-5 (Version None)
Quarter: 2012Q3

REPORT INFORMATION
  Report Type: 
  Country: None (occurrence: None)
  Receive Date: 20120801
  Receipt Date: 20120723
  Transmission Date: 20120928
  Serious: Yes (Hospitalization)
  Sender: FDA-Public Use
  Company Number: FR-ASTRAZENECA-2012SE52106

PATIENT
  Age: 32084 Day
  Sex: Male

DRUGS (4)
  1. PERINDOPRIL ERBUMINE [Concomitant]
  2. NEXIUM [Suspect]
     Indication: GASTROOESOPHAGEAL REFLUX DISEASE
     Route: 048
     Dates: start: 20120301
  3. PREVISCAN [Suspect]
     Indication: ATRIAL FIBRILLATION
     Dosage: ALTERNATING OF 5 MG AND 15 MG EVERY OTHER DAY
     Route: 048
     Dates: start: 20120301, end: 20120522
  4. LASIX [Concomitant]
     Route: 048

REACTIONS (1)
  - INTRACRANIAL HAEMATOMA [None]
